FAERS Safety Report 20301059 (Version 1)
Quarter: 2022Q1

REPORT INFORMATION
  Report Type: Spontaneous
  Country: US (occurrence: None)
  Receive Date: 20220105
  Receipt Date: 20220105
  Transmission Date: 20220424
  Serious: Yes (unspecified)
  Sender: FDA-Public Use
  Company Number: None

PATIENT
  Age: 34 Year
  Sex: Female
  Weight: 147 kg

DRUGS (1)
  1. RITUXAN [Suspect]
     Active Substance: RITUXIMAB
     Indication: Neuromyelitis optica spectrum disorder
     Dosage: OTHER FREQUENCY : Q 14 DAYS X2 2X/YR;?
     Dates: start: 20180123

REACTIONS (3)
  - Infusion related reaction [None]
  - Cough [None]
  - Throat irritation [None]

NARRATIVE: CASE EVENT DATE: 20211223
